FAERS Safety Report 5652031-1 (Version None)
Quarter: 2008Q1

REPORT INFORMATION
  Report Type: 
  Country: None (occurrence: None)
  Receive Date: 20080131
  Receipt Date: 20071106
  Transmission Date: 20080703
  Serious: No
  Sender: FDA-Public Use
  Company Number: US200711001697

PATIENT
  Age: 72 Year
  Sex: Male
  Weight: 74.4 kg

DRUGS (10)
  1. BYETTA [Suspect]
     Indication: TYPE 2 DIABETES MELLITUS
     Dosage: 5 UG, 2/D, SUBCUTANEOUS; 10 UG, 2/D, SUBCUTANEOUS
     Route: 058
     Dates: start: 20070907, end: 20071009
  2. BYETTA [Suspect]
     Indication: TYPE 2 DIABETES MELLITUS
     Dosage: 5 UG, 2/D, SUBCUTANEOUS; 10 UG, 2/D, SUBCUTANEOUS
     Route: 058
     Dates: start: 20071010
  3. METFORMIN HCL [Concomitant]
  4. GLYBURIDE [Concomitant]
  5. DIOVAN (HYDROCHLOROTHIAZIDE, VALSARTAN) [Concomitant]
  6. METOPROLOL TARTRATE [Concomitant]
  7. ZOCOR [Concomitant]
  8. PLAVIX [Concomitant]
  9. ASPIRIN [Concomitant]
  10. FERROUS SULFATE TAB [Concomitant]

REACTIONS (8)
  - ABDOMINAL DISTENSION [None]
  - BLOOD GLUCOSE DECREASED [None]
  - BLOOD GLUCOSE INCREASED [None]
  - ERUCTATION [None]
  - FLATULENCE [None]
  - INJECTION SITE BRUISING [None]
  - INJECTION SITE HAEMORRHAGE [None]
  - NAUSEA [None]
